FAERS Safety Report 8489602-3 (Version None)
Quarter: 2012Q3

REPORT INFORMATION
  Report Type: 
  Country: None (occurrence: None)
  Receive Date: 20120705
  Receipt Date: 20120628
  Transmission Date: 20120928
  Serious: No
  Sender: FDA-Public Use
  Company Number: US-PFIZER INC-2012122332

PATIENT
  Sex: Male

DRUGS (1)
  1. VIAGRA [Suspect]
     Indication: ERECTILE DYSFUNCTION
     Dosage: 50 MG, UNK

REACTIONS (5)
  - PRODUCT PACKAGING COUNTERFEIT [None]
  - SINUS CONGESTION [None]
  - HEADACHE [None]
  - DRUG INEFFECTIVE [None]
  - PRODUCT COUNTERFEIT [None]
